FAERS Safety Report 5534063-7 (Version None)
Quarter: 2007Q4

REPORT INFORMATION
  Report Type: 
  Country: None (occurrence: None)
  Receive Date: 20071205
  Receipt Date: 20071129
  Transmission Date: 20080405
  Serious: Yes (Other)
  Sender: FDA-Public Use
  Company Number: NO-JNJFOC-20071200252

PATIENT
  Sex: Female

DRUGS (3)
  1. IMODIUM [Suspect]
     Indication: COLITIS ULCERATIVE
  2. SALMETEROL/FLUTICASONE PROPIONATE [Concomitant]
  3. COLESTYRAMINE [Concomitant]

REACTIONS (7)
  - COORDINATION ABNORMAL [None]
  - DRY MOUTH [None]
  - INCORRECT DRUG ADMINISTRATION DURATION [None]
  - INTENTIONAL OVERDOSE [None]
  - SYNCOPE [None]
  - TREMOR [None]
  - VISUAL ACUITY REDUCED [None]
